FAERS Safety Report 9682507 (Version 3)
Quarter: 2013Q4

REPORT INFORMATION
  Report Type: Spontaneous
  Country: US (occurrence: US)
  Receive Date: 20131112
  Receipt Date: 20131219
  Transmission Date: 20140711
  Serious: Yes (Other)
  Sender: FDA-Public Use
  Company Number: US-SHIRE-ALL1-2013-06531

PATIENT
  Age: 82 Year
  Sex: Female
  Weight: 57.6 kg

DRUGS (4)
  1. LIALDA [Suspect]
     Indication: GASTROOESOPHAGEAL REFLUX DISEASE
     Dosage: 2.4 G (TWO 1.2 G), 1X/DAY:QD
     Route: 048
     Dates: start: 20130910, end: 20130911
  2. AMLODIPINE [Concomitant]
     Indication: HYPERTENSION
     Dosage: 5 MG, 1X/DAY:QD
     Route: 048
     Dates: start: 2003
  3. IRBESARTAN [Concomitant]
     Indication: HYPERTENSION
     Dosage: 300 MG, 1X/DAY:QD
     Route: 048
     Dates: start: 201308
  4. TOPROL [Concomitant]
     Indication: HYPERTENSION
     Dosage: 50 MG (TWO 25 MG), 1X/DAY:QD
     Route: 048
     Dates: start: 2003

REACTIONS (7)
  - Loss of consciousness [Recovered/Resolved]
  - Abdominal discomfort [Recovered/Resolved]
  - Vomiting [Recovered/Resolved]
  - Nausea [Recovered/Resolved]
  - Body temperature increased [Recovered/Resolved]
  - Off label use [Recovered/Resolved]
  - Diarrhoea [Recovered/Resolved]
